FAERS Safety Report 9004453 (Version 1)
Quarter: 2013Q1

REPORT INFORMATION
  Report Type: Spontaneous
  Country: US (occurrence: None)
  Receive Date: 20130103
  Receipt Date: 20130103
  Transmission Date: 20140127
  Serious: Yes (Other)
  Sender: FDA-Public Use
  Company Number: None

PATIENT
  Age: 53 Year
  Sex: Female
  Weight: 113.4 kg

DRUGS (1)
  1. ASPIRIN [Suspect]
     Indication: MIGRAINE
     Dates: start: 20121220, end: 20121225

REACTIONS (4)
  - Tremor [None]
  - Seizure like phenomena [None]
  - Oral disorder [None]
  - Unevaluable event [None]
